FAERS Safety Report 19615763 (Version 1)
Quarter: 2021Q3

REPORT INFORMATION
  Report Type: Spontaneous
  Country: FR (occurrence: FR)
  Receive Date: 20210727
  Receipt Date: 20210727
  Transmission Date: 20211014
  Serious: Yes (Other)
  Sender: FDA-Public Use
  Company Number: FR-PFIZER INC-2021882472

PATIENT
  Age: 40 Year
  Sex: Male

DRUGS (1)
  1. LYRICA [Suspect]
     Active Substance: PREGABALIN
     Dosage: 2 DF, THREE TIMES A DAY (2 DF IN MORNING, 2DF AT MIDDAY, 2DF IN EVENING)
     Route: 048
     Dates: start: 2021, end: 20210611

REACTIONS (2)
  - Withdrawal syndrome [Recovering/Resolving]
  - Drug abuse [Unknown]

NARRATIVE: CASE EVENT DATE: 2021
